FAERS Safety Report 9031315 (Version 1)
Quarter: 2013Q1

REPORT INFORMATION
  Report Type: Spontaneous
  Country: AU (occurrence: AU)
  Receive Date: 20130124
  Receipt Date: 20130124
  Transmission Date: 20140127
  Serious: Yes (Other)
  Sender: FDA-Public Use
  Company Number: AU-PFIZER INC-2013022503

PATIENT
  Age: 18 Year
  Sex: Female

DRUGS (1)
  1. LOETTE [Suspect]

REACTIONS (1)
  - Kidney infection [Unknown]
